FAERS Safety Report 8543653-9 (Version None)
Quarter: 2012Q3

REPORT INFORMATION
  Report Type: 
  Country: None (occurrence: None)
  Receive Date: 20120717
  Receipt Date: 20120703
  Transmission Date: 20120928
  Serious: Yes (Other)
  Sender: FDA-Public Use
  Company Number: 2012MA008463

PATIENT
  Sex: Female

DRUGS (1)
  1. FLUOXETINE HYDROCHLORIDE [Suspect]
     Dosage: 20 MG

REACTIONS (3)
  - ANXIETY [None]
  - PARANOIA [None]
  - SLEEP DISORDER [None]
